FAERS Safety Report 9717839 (Version 1)
Quarter: 2013Q4

REPORT INFORMATION
  Report Type: Spontaneous
  Country: US (occurrence: US)
  Receive Date: 20131125
  Receipt Date: 20131125
  Transmission Date: 20140711
  Serious: No
  Sender: FDA-Public Use
  Company Number: US-VIVUS-2012V1000265

PATIENT
  Age: 43 Year
  Sex: Female
  Weight: 88.53 kg

DRUGS (3)
  1. QSYMIA 3.75MG/23MG [Suspect]
     Indication: WEIGHT DECREASED
     Route: 048
     Dates: start: 20121123
  2. LEVOTHYROXIN [Concomitant]
     Indication: THYROIDITIS
  3. LEVOTHYROXIN [Concomitant]

REACTIONS (4)
  - Nervousness [Recovered/Resolved]
  - Mood altered [Recovered/Resolved]
  - Irritability [Recovered/Resolved]
  - Drug dose omission [Recovered/Resolved]
